FAERS Safety Report 7481377-X (Version None)
Quarter: 2011Q2

REPORT INFORMATION
  Report Type: 
  Country: None (occurrence: None)
  Receive Date: 20110516
  Receipt Date: 20110512
  Transmission Date: 20111010
  Serious: Yes (Life-Threatening)
  Sender: FDA-Public Use
  Company Number: CL-B.I. PHARMACEUTICALS,INC./RIDGEFIELD-2011-RA-00142RA

PATIENT
  Sex: Female
  Weight: 60 kg

DRUGS (1)
  1. MELOXICAM [Suspect]
     Dosage: 1 AMPOULE
     Route: 030
     Dates: start: 20110330, end: 20110330

REACTIONS (3)
  - HYPERSENSITIVITY [None]
  - HYPOTENSION [None]
  - BRONCHIAL OBSTRUCTION [None]
